FAERS Safety Report 10261966 (Version 1)
Quarter: 2014Q2

REPORT INFORMATION
  Report Type: Spontaneous
  Country: US (occurrence: US)
  Receive Date: 20140626
  Receipt Date: 20140626
  Transmission Date: 20141212
  Serious: No
  Sender: FDA-Public Use
  Company Number: US-MYLANLABS-2014S1005293

PATIENT
  Age: 71 Year
  Sex: 0
  Weight: 76.66 kg

DRUGS (2)
  1. OMEPRAZOLE DELAYED-RELEASE CAPSULES, USP [Suspect]
     Route: 048
     Dates: end: 201402
  2. PERCOCET [Concomitant]

REACTIONS (2)
  - Dysgeusia [Recovered/Resolved]
  - Oesophageal pain [Recovered/Resolved]
